FAERS Safety Report 11679172 (Version 2)
Quarter: 2015Q4

REPORT INFORMATION
  Report Type: Spontaneous
  Country: US (occurrence: US)
  Receive Date: 20151027
  Receipt Date: 20151104
  Transmission Date: 20160304
  Serious: No
  Sender: FDA-Public Use
  Company Number: US-ELI_LILLY_AND_COMPANY-US201007003397

PATIENT
  Age: 81 Year
  Sex: Female

DRUGS (1)
  1. FORTEO [Suspect]
     Active Substance: TERIPARATIDE
     Indication: OSTEOPOROSIS
     Dosage: UNK, UNKNOWN

REACTIONS (11)
  - Laceration [Unknown]
  - Nasopharyngitis [Not Recovered/Not Resolved]
  - Contusion [Recovered/Resolved]
  - Gait disturbance [Recovering/Resolving]
  - Muscle spasms [Unknown]
  - Pain in extremity [Unknown]
  - Eye swelling [Unknown]
  - Pain [Unknown]
  - Back pain [Unknown]
  - Fall [Recovered/Resolved]
  - Local swelling [Unknown]

NARRATIVE: CASE EVENT DATE: 201007
